FAERS Safety Report 16963519 (Version 3)
Quarter: 2019Q4

REPORT INFORMATION
  Report Type: Spontaneous
  Country: JP (occurrence: JP)
  Receive Date: 20191025
  Receipt Date: 20191209
  Transmission Date: 20200122
  Serious: Yes (Death, Other)
  Sender: FDA-Public Use
  Company Number: JP-009507513-1910JPN003085J

PATIENT
  Age: 86 Year
  Sex: Male

DRUGS (1)
  1. CUBICIN [Suspect]
     Active Substance: DAPTOMYCIN
     Dosage: UNK
     Route: 041

REACTIONS (3)
  - Cerebral haemorrhage [Fatal]
  - Immune thrombocytopenic purpura [Fatal]
  - Organising pneumonia [Fatal]

NARRATIVE: CASE EVENT DATE: 20190528
